FAERS Safety Report 9027994 (Version 1)
Quarter: 2013Q1

REPORT INFORMATION
  Report Type: Spontaneous
  Country: US (occurrence: US)
  Receive Date: 20130123
  Receipt Date: 20130123
  Transmission Date: 20140127
  Serious: Yes (Other)
  Sender: FDA-Public Use
  Company Number: US-ROCHE-1179064

PATIENT
  Age: 69 Year
  Sex: Male

DRUGS (5)
  1. ZELBORAF [Suspect]
     Indication: MALIGNANT MELANOMA
     Route: 065
  2. ZELBORAF [Suspect]
     Route: 065
  3. ZELBORAF [Suspect]
     Route: 065
  4. ZELBORAF [Suspect]
     Route: 065
  5. LEXAPRO [Concomitant]
     Indication: DEPRESSION
     Route: 065
     Dates: start: 20130104

REACTIONS (12)
  - Squamous cell carcinoma of skin [Unknown]
  - Liver injury [Unknown]
  - Drug ineffective [Unknown]
  - Nausea [Unknown]
  - Vertigo [Unknown]
  - Pruritus [Unknown]
  - Rash [Unknown]
  - Arthralgia [Unknown]
  - Abdominal pain [Unknown]
  - Decreased appetite [Unknown]
  - Fatigue [Unknown]
  - Disease progression [Unknown]
